FAERS Safety Report 21523131 (Version 1)
Quarter: 2022Q4

REPORT INFORMATION
  Report Type: Spontaneous
  Country: AU (occurrence: AU)
  Receive Date: 20221029
  Receipt Date: 20221029
  Transmission Date: 20230112
  Serious: Yes (Other)
  Sender: FDA-Public Use
  Company Number: AU-JNJFOC-20221042186

PATIENT
  Weight: 46 kg

DRUGS (7)
  1. UPTRAVI [Suspect]
     Active Substance: SELEXIPAG
     Indication: Pulmonary arterial hypertension
     Route: 048
  2. OPSUMIT [Suspect]
     Active Substance: MACITENTAN
     Indication: Pulmonary arterial hypertension
     Route: 048
  3. VELETRI [Suspect]
     Active Substance: EPOPROSTENOL
     Indication: Pulmonary arterial hypertension
     Route: 042
  4. RIVAROXABAN [Concomitant]
     Active Substance: RIVAROXABAN
  5. FUROSEMIDE [Concomitant]
     Active Substance: FUROSEMIDE
     Dosage: PRN (AS NEEDED)
  6. GASTROSTOP [Concomitant]
     Dosage: WEEKLY
  7. ONDANSETRON [Concomitant]
     Active Substance: ONDANSETRON
     Dosage: 2 TO 3 TIMES/ WEEK

REACTIONS (4)
  - Pericardial effusion [Unknown]
  - Brain natriuretic peptide abnormal [Unknown]
  - Headache [Unknown]
  - Nausea [Unknown]
